FAERS Safety Report 8842439 (Version 1)
Quarter: 2012Q4

REPORT INFORMATION
  Report Type: 
  Country: US (occurrence: US)
  Receive Date: 20121016
  Receipt Date: 20121016
  Transmission Date: 20130627
  Serious: No
  Sender: FDA-Public Use
  Company Number: US-009507513-1210USA006906

PATIENT
  Sex: Male

DRUGS (2)
  1. REBETOL [Suspect]
     Dosage: 600 mg, bid
     Route: 048
  2. REBETOL [Suspect]
     Dosage: 600 mg, bid
     Route: 048

REACTIONS (1)
  - Anaemia [Recovered/Resolved]
